FAERS Safety Report 5117443-3 (Version None)
Quarter: 2006Q3

REPORT INFORMATION
  Report Type: 
  Country: None (occurrence: None)
  Receive Date: 20060926
  Receipt Date: 20060913
  Transmission Date: 20061208
  Serious: Yes (Death, Hospitalization, Other)
  Sender: FDA-Public Use
  Company Number: US200609003293

PATIENT
  Age: 49 Year
  Sex: Male

DRUGS (1)
  1. ZYPREXA [Suspect]
     Indication: DEPRESSION

REACTIONS (7)
  - CARDIO-RESPIRATORY ARREST [None]
  - HEART RATE DECREASED [None]
  - LEG AMPUTATION [None]
  - PERIPHERAL VASCULAR DISORDER [None]
  - PULMONARY HAEMORRHAGE [None]
  - SEPSIS [None]
  - SKIN ULCER [None]
